FAERS Safety Report 23015461 (Version 2)
Quarter: 2023Q4

REPORT INFORMATION
  Report Type: Spontaneous
  Country: US (occurrence: US)
  Receive Date: 20231002
  Receipt Date: 20231016
  Transmission Date: 20240109
  Serious: Yes (Hospitalization, Other)
  Sender: FDA-Public Use
  Company Number: US-TEVA-2023-US-2930237

PATIENT
  Age: 6 Year
  Sex: Male

DRUGS (3)
  1. GUANFACINE [Suspect]
     Active Substance: GUANFACINE
     Indication: Attention deficit hyperactivity disorder
     Dosage: 4 DOSAGE FORMS DAILY;
     Route: 048
     Dates: start: 202103, end: 20230905
  2. ESOMEPRAZOLE [Concomitant]
     Active Substance: ESOMEPRAZOLE
     Indication: Product used for unknown indication
     Route: 065
  3. MELATONIN [Concomitant]
     Active Substance: MELATONIN
     Indication: Product used for unknown indication
     Route: 065

REACTIONS (11)
  - Duodenal ulcer [Not Recovered/Not Resolved]
  - Gastrointestinal haemorrhage [Unknown]
  - Blood loss anaemia [Unknown]
  - Endoscopy [Unknown]
  - Faeces discoloured [Unknown]
  - Fatigue [Unknown]
  - Pallor [Unknown]
  - Lethargy [Unknown]
  - Constipation [Unknown]
  - Abdominal pain [Unknown]
  - Nausea [Unknown]

NARRATIVE: CASE EVENT DATE: 20230901
